FAERS Safety Report 10444326 (Version 1)
Quarter: 2014Q3

REPORT INFORMATION
  Report Type: Spontaneous
  Country: CA (occurrence: None)
  Receive Date: 20140908
  Receipt Date: 20140908
  Transmission Date: 20150326
  Serious: Yes (Hospitalization)
  Sender: FDA-Public Use
  Company Number: 2014SCAL000065

PATIENT
  Age: 63 Year
  Sex: Male

DRUGS (2)
  1. TERBINAFINE (TERBINAFINE) [Suspect]
     Active Substance: TERBINAFINE
     Indication: ONYCHOMYCOSIS
     Route: 048
  2. METOPROLOL TARTRATE (METOPROLOL TARTRATE) (METOPROLOL TARTRATE) [Suspect]
     Active Substance: METOPROLOL TARTRATE
     Indication: CORONARY ARTERY DISEASE

REACTIONS (5)
  - Fall [None]
  - Sinus bradycardia [None]
  - General physical health deterioration [None]
  - Confusional state [None]
  - Drug interaction [None]
